FAERS Safety Report 5697337-5 (Version None)
Quarter: 2008Q2

REPORT INFORMATION
  Report Type: 
  Country: None (occurrence: None)
  Receive Date: 20080408
  Receipt Date: 20080327
  Transmission Date: 20081010
  Serious: Yes (Hospitalization, Other)
  Sender: FDA-Public Use
  Company Number: JP-BAYER-200810331BYL

PATIENT
  Age: 32 Year
  Sex: Female

DRUGS (14)
  1. AVELOX [Suspect]
     Indication: BRONCHITIS
     Dosage: TOTAL DAILY DOSE: 400 MG  UNIT DOSE: 400 MG
     Route: 048
     Dates: start: 20080108, end: 20080111
  2. AVELOX [Suspect]
     Dosage: TOTAL DAILY DOSE: 400 MG  UNIT DOSE: 400 MG
     Route: 048
     Dates: start: 20080214, end: 20080214
  3. LOXONIN [Concomitant]
     Indication: MIXED CONNECTIVE TISSUE DISEASE
     Dosage: UNIT DOSE: 60 MG
     Route: 048
     Dates: start: 20061030
  4. RIZE [Concomitant]
     Indication: ANXIETY DISORDER
     Dosage: TOTAL DAILY DOSE: 10 MG  UNIT DOSE: 5 MG
     Route: 048
     Dates: start: 20061006
  5. ULGUT [Concomitant]
     Indication: GASTRITIS
     Dosage: UNIT DOSE: 200 MG
     Route: 048
     Dates: start: 20061030
  6. CORTRIL [Concomitant]
     Indication: ISOLATED ADRENOCORTICOTROPIC HORMONE DEFICIENCY
     Dosage: UNIT DOSE: 10 MG
     Route: 048
     Dates: start: 20070918, end: 20080111
  7. GASTER D [Concomitant]
     Indication: GASTRITIS
     Dosage: TOTAL DAILY DOSE: 20 MG  UNIT DOSE: 10 MG
     Route: 048
     Dates: start: 20061011
  8. FERROMIA [Concomitant]
     Indication: IRON DEFICIENCY ANAEMIA
     Dosage: TOTAL DAILY DOSE: 50 MG  UNIT DOSE: 50 MG
     Route: 048
     Dates: start: 20071219
  9. PREDONINE [Concomitant]
     Indication: MIXED CONNECTIVE TISSUE DISEASE
     Dosage: UNIT DOSE: 5 MG
     Route: 048
     Dates: start: 20061001
  10. PREDONINE [Concomitant]
     Route: 048
     Dates: start: 20080125
  11. PREDONINE [Concomitant]
     Route: 048
     Dates: start: 20080118
  12. PREDONINE [Concomitant]
     Route: 048
     Dates: start: 20070901
  13. PREDONINE [Concomitant]
     Route: 048
     Dates: start: 20070201
  14. PREDONINE [Concomitant]
     Dosage: UNIT DOSE: 5 MG
     Route: 048
     Dates: start: 20080111

REACTIONS (3)
  - ANAPHYLACTIC REACTION [None]
  - FALL [None]
  - HYPERSENSITIVITY [None]
